FAERS Safety Report 9417186 (Version 1)
Quarter: 2013Q3

REPORT INFORMATION
  Report Type: Spontaneous
  Country: GB (occurrence: GB)
  Receive Date: 20130722
  Receipt Date: 20130722
  Transmission Date: 20140515
  Serious: Yes (Hospitalization)
  Sender: FDA-Public Use
  Company Number: GER/UKI/13/0031932

PATIENT
  Age: 68 Year
  Sex: Female
  Weight: 46 kg

DRUGS (21)
  1. CIPROFLOXACIN (CIPROFLOXACIN) [Suspect]
     Indication: PRODUCT USED FOR UNKNOWN INDICATION
     Dates: start: 20130611, end: 20130616
  2. ADCAL (CARBAZOCHROME) [Concomitant]
  3. ASPIRIN (ACETYLSALICYLIC ACID) [Concomitant]
  4. AMOXICILLIN (AMOXICILLIN) [Concomitant]
  5. ATORVASTATIN (ATORVASTATIN) [Concomitant]
  6. BUDESONIDE (BUDESONIDE) [Concomitant]
  7. CARBOCISTEINE (CARBOCISTEINE) [Concomitant]
  8. CLOPIDOGREL (CLOPIDOGREL) [Concomitant]
  9. DILTIAZEM (DILTIAZEM HYDROCHLORIDE) [Concomitant]
  10. DOXYCYCLINE (DOXYCYCLINE) [Concomitant]
  11. HYDROCORTISONE (HYDROCORTISONE) [Concomitant]
  12. IPRATROPIUM (IPRATROPIUM BROMIDE) [Concomitant]
  13. ISOSORBIDE MONONITRATE (ISOSORBIDE MONONITRATE) [Concomitant]
  14. LANSOPRAZOLE (LANSOPRAZOLE) [Concomitant]
  15. NYSTAN (NYSTATIN) [Concomitant]
  16. PREDNISOLONE (PREDNISOLONE) [Concomitant]
  17. SALBUTAMOL (SALBUTAMOL) [Concomitant]
  18. SIMPLE LINCTUS (CITRIC ACID) [Concomitant]
  19. TIOTROPIUM (TIOTROPIUM) [Concomitant]
  20. TRAMADOL (TRAMADOL) [Concomitant]
  21. VENTOLIN (SALBUTAMOL) [Concomitant]

REACTIONS (1)
  - Tenosynovitis [None]
